FAERS Safety Report 10009543 (Version 1)
Quarter: 2014Q1

REPORT INFORMATION
  Report Type: Spontaneous
  Country: US (occurrence: US)
  Receive Date: 20140312
  Receipt Date: 20140312
  Transmission Date: 20141002
  Serious: Yes (Other)
  Sender: FDA-Public Use
  Company Number: US-INCYTE CORPORATION-2012IN001831

PATIENT
  Age: 86 Year
  Sex: Female

DRUGS (4)
  1. JAKAFI [Suspect]
     Indication: MYELOFIBROSIS
     Dosage: NOT SPECIFIED
     Route: 048
     Dates: end: 20120816
  2. JAKAFI [Suspect]
     Dosage: 15 MG, BID
     Dates: start: 20120826
  3. PRILOSEC [Concomitant]
     Dosage: 20 MG, QD
  4. MULTIVITAMINS, PLAIN [Concomitant]

REACTIONS (4)
  - Platelet count decreased [Recovered/Resolved]
  - Haemoglobin decreased [Unknown]
  - Red blood cell count decreased [Unknown]
  - Haematocrit decreased [Unknown]
